FAERS Safety Report 8418038-6 (Version None)
Quarter: 2012Q2

REPORT INFORMATION
  Report Type: 
  Country: None (occurrence: None)
  Receive Date: 20120607
  Receipt Date: 20111129
  Transmission Date: 20120825
  Serious: Yes (Hospitalization, Other)
  Sender: FDA-Public Use
  Company Number: ES-CELGENEUS-144-21880-11114012

PATIENT
  Sex: Female
  Weight: 55 kg

DRUGS (21)
  1. LBH589 [Suspect]
     Dosage: 5 MILLIGRAM
     Route: 048
     Dates: start: 20090205
  2. REVLIMID [Suspect]
     Dosage: 10 MILLIGRAM
     Route: 048
     Dates: start: 20090119, end: 20090201
  3. DEXAMETHASONE [Suspect]
     Route: 048
     Dates: start: 20090204
  4. REVLIMID [Suspect]
     Route: 048
     Dates: start: 20081028, end: 20090118
  5. LBH589 [Suspect]
     Dosage: 10 MILLIGRAM
     Route: 048
     Dates: start: 20090204
  6. DEXAMETHASONE [Suspect]
     Route: 048
     Dates: start: 20081014
  7. DEXAMETHASONE [Suspect]
     Route: 048
     Dates: start: 20090206
  8. DEXAMETHASONE [Suspect]
     Route: 048
     Dates: start: 20090205
  9. REVLIMID [Suspect]
     Dosage: 10 MILLIGRAM
     Route: 048
     Dates: start: 20090204
  10. LBH589 [Suspect]
     Dosage: 10 MILLIGRAM
     Route: 048
     Dates: start: 20090119, end: 20090201
  11. LBH589 [Suspect]
     Dosage: 5 MILLIGRAM
     Route: 048
     Dates: start: 20090206
  12. REVLIMID [Suspect]
     Indication: MULTIPLE MYELOMA
     Dosage: 25 MILLIGRAM
     Route: 048
     Dates: start: 20081014, end: 20081027
  13. REVLIMID [Suspect]
     Dosage: 5 MILLIGRAM
     Route: 048
     Dates: start: 20090206
  14. DEXAMETHASONE [Suspect]
     Indication: MULTIPLE MYELOMA
     Route: 048
     Dates: start: 20081014, end: 20081027
  15. DEXAMETHASONE [Suspect]
     Route: 048
     Dates: start: 20090119, end: 20090201
  16. LBH589 [Suspect]
     Dosage: 25 MILLIGRAM
     Route: 048
     Dates: start: 20081014
  17. LBH589 [Suspect]
     Route: 048
     Dates: start: 20081028, end: 20090118
  18. REVLIMID [Suspect]
     Dosage: 25 MILLIGRAM
     Route: 048
     Dates: start: 20081014
  19. REVLIMID [Suspect]
     Dosage: 5 MILLIGRAM
     Route: 048
     Dates: start: 20090205
  20. DEXAMETHASONE [Suspect]
     Route: 048
     Dates: start: 20081028, end: 20090118
  21. LBH589 [Suspect]
     Indication: MULTIPLE MYELOMA
     Dosage: 10 MILLIGRAM
     Route: 048
     Dates: start: 20081014, end: 20081027

REACTIONS (5)
  - FEBRILE NEUTROPENIA [None]
  - RESPIRATORY TRACT INFECTION [None]
  - DEPRESSION [None]
  - PYREXIA [None]
  - CARDIOTOXICITY [None]
